FAERS Safety Report 5926659-5 (Version None)
Quarter: 2008Q4

REPORT INFORMATION
  Report Type: 
  Country: None (occurrence: None)
  Receive Date: 20081022
  Receipt Date: 20081016
  Transmission Date: 20090506
  Serious: Yes (Other)
  Sender: FDA-Public Use
  Company Number: GB-ROCHE-592044

PATIENT
  Sex: Female
  Weight: 115.1 kg

DRUGS (4)
  1. ORLISTAT [Suspect]
     Indication: OBESITY
     Route: 048
     Dates: start: 20080630
  2. SALBUTAMOL [Concomitant]
     Indication: ASTHMA
     Route: 055
  3. OMEPRAZOLE [Concomitant]
     Indication: ILL-DEFINED DISORDER
     Route: 048
  4. CETIRIZINE HCL [Concomitant]
     Route: 048

REACTIONS (1)
  - BREAST CANCER [None]
